FAERS Safety Report 7544186-9 (Version None)
Quarter: 2011Q2

REPORT INFORMATION
  Report Type: 
  Country: None (occurrence: None)
  Receive Date: 20110613
  Receipt Date: 20061011
  Transmission Date: 20111010
  Serious: Yes (Other)
  Sender: FDA-Public Use
  Company Number: PHMT2006CA01781

PATIENT
  Sex: Male

DRUGS (2)
  1. TYLENOL-500 [Concomitant]
  2. ZOMETA [Suspect]
     Indication: PROSTATE CANCER
     Dosage: 4 MG, QW61D
     Dates: start: 20050706

REACTIONS (4)
  - FALL [None]
  - URINARY RETENTION [None]
  - BLOOD CREATININE DECREASED [None]
  - MOBILITY DECREASED [None]
